FAERS Safety Report 21942645 (Version 5)
Quarter: 2024Q1

REPORT INFORMATION
  Report Type: Report from Study
  Country: CA (occurrence: CA)
  Receive Date: 20230202
  Receipt Date: 20240131
  Transmission Date: 20240410
  Serious: Yes (Other)
  Sender: FDA-Public Use
  Company Number: CA-CELLTRION INC.-2023CA001814

PATIENT

DRUGS (14)
  1. RITUXIMAB [Suspect]
     Active Substance: RITUXIMAB
     Indication: Rheumatoid arthritis
     Dosage: 1000 MILLIGRAM
     Route: 042
  2. ACTEMRA [Suspect]
     Active Substance: TOCILIZUMAB
     Indication: Rheumatoid arthritis
     Dosage: 256 MILLIGRAM, 1 EVERY 1 MONTHS
     Route: 042
  3. ACTEMRA [Suspect]
     Active Substance: TOCILIZUMAB
     Dosage: 512 MILLIGRAM, 1 EVERY 1 MONTHS
     Route: 042
  4. ACTEMRA [Suspect]
     Active Substance: TOCILIZUMAB
     Dosage: 479 MILLIGRAM, 1 EVERY 1 MONTHS
     Route: 042
  5. ACTEMRA [Suspect]
     Active Substance: TOCILIZUMAB
     Indication: Rheumatoid arthritis
     Dosage: 488 MILLIGRAM, 1 EVERY 1 MONTHS
     Route: 042
  6. ACTEMRA [Suspect]
     Active Substance: TOCILIZUMAB
     Indication: Rheumatoid arthritis
     Dosage: 512 MG, 1 EVERY 1 MONTHS
     Route: 042
  7. ACETAMINOPHEN [Concomitant]
     Active Substance: ACETAMINOPHEN
     Indication: Premedication
     Dosage: 650 MILLIGRAM
     Route: 048
  8. CELEBREX [Concomitant]
     Active Substance: CELECOXIB
  9. DIPHENHYDRAMINE HYDROCHLORIDE [Concomitant]
     Active Substance: DIPHENHYDRAMINE HYDROCHLORIDE
     Indication: Premedication
     Dosage: 50 MILLIGRAM
     Route: 048
  10. FOLIC ACID [Concomitant]
     Active Substance: FOLIC ACID
  11. METFORMIN [Concomitant]
     Active Substance: METFORMIN HYDROCHLORIDE
     Route: 065
  12. METHOTREXATE [Concomitant]
     Active Substance: METHOTREXATE
     Route: 037
  13. METHOTREXATE [Concomitant]
     Active Substance: METHOTREXATE
     Route: 048
  14. METHYLPREDNISOLONE [Concomitant]
     Active Substance: METHYLPREDNISOLONE
     Indication: Premedication
     Dosage: 100 MILLIGRAM
     Route: 042

REACTIONS (20)
  - Blood pressure systolic abnormal [Recovered/Resolved]
  - Blood pressure diastolic decreased [Recovered/Resolved]
  - Blood pressure systolic decreased [Recovered/Resolved]
  - C-reactive protein decreased [Recovered/Resolved]
  - Discharge [Recovered/Resolved]
  - Haemorrhage [Recovered/Resolved]
  - Heart rate decreased [Recovered/Resolved]
  - Joint swelling [Recovered/Resolved]
  - Nephrolithiasis [Recovered/Resolved]
  - Peripheral swelling [Recovered/Resolved]
  - Rheumatoid nodule [Recovered/Resolved]
  - Synovitis [Recovered/Resolved]
  - Weight increased [Recovered/Resolved]
  - Wound secretion [Recovered/Resolved]
  - Back pain [Recovered/Resolved]
  - Blister [Recovered/Resolved]
  - Blood pressure decreased [Recovered/Resolved]
  - Blood pressure fluctuation [Recovered/Resolved]
  - Hypotension [Recovered/Resolved]
  - Drug ineffective [Recovered/Resolved]
